FAERS Safety Report 4867336-1 (Version None)
Quarter: 2005Q4

REPORT INFORMATION
  Report Type: 
  Country: None (occurrence: None)
  Receive Date: 20051223
  Receipt Date: 20051223
  Transmission Date: 20060501
  Serious: Yes (Other)
  Sender: FDA-Public Use
  Company Number: None

PATIENT
  Age: 46 Year
  Sex: Female
  Weight: 44.2 kg

DRUGS (1)
  1. ERTAPENEM    1G       MERCK [Suspect]
     Indication: ARTHRITIS INFECTIVE
     Dosage: 500MG    Q24H    IV
     Route: 042
     Dates: start: 20051220, end: 20051221

REACTIONS (1)
  - CONVULSION [None]
